FAERS Safety Report 18075525 (Version 1)
Quarter: 2020Q3

REPORT INFORMATION
  Report Type: Other
  Country: US (occurrence: BR)
  Receive Date: 20200727
  Receipt Date: 20200727
  Transmission Date: 20201103
  Serious: Yes (Hospitalization, Other)
  Sender: FDA-Public Use
  Company Number: BR-BRECKENRIDGE PHARMACEUTICAL, INC.-2087798

PATIENT
  Age: 45 Year
  Sex: Male

DRUGS (1)
  1. UNKNOWN [Suspect]
     Active Substance: UNSPECIFIED INGREDIENT
     Indication: SEIZURE
     Route: 042

REACTIONS (1)
  - Renal failure [None]
